FAERS Safety Report 11452095 (Version 2)
Quarter: 2015Q3

REPORT INFORMATION
  Report Type: Spontaneous
  Country: US (occurrence: US)
  Receive Date: 20150903
  Receipt Date: 20150908
  Transmission Date: 20151125
  Serious: No
  Sender: FDA-Public Use
  Company Number: PHEH2014US018116

PATIENT
  Age: 59 Year
  Weight: 72.57 kg

DRUGS (1)
  1. VIVELLE DOT [Suspect]
     Active Substance: ESTRADIOL
     Indication: HORMONE REPLACEMENT THERAPY
     Dosage: 0.1 MG, BIW
     Route: 062
     Dates: start: 20040801

REACTIONS (3)
  - Application site pain [Unknown]
  - Application site irritation [Not Recovered/Not Resolved]
  - Application site inflammation [Unknown]

NARRATIVE: CASE EVENT DATE: 20121201
